FAERS Safety Report 22643321 (Version 1)
Quarter: 2023Q2

REPORT INFORMATION
  Report Type: Spontaneous
  Country: KR (occurrence: KR)
  Receive Date: 20230627
  Receipt Date: 20230627
  Transmission Date: 20230721
  Serious: Yes (Other)
  Sender: FDA-Public Use
  Company Number: KR-ALKEM LABORATORIES LIMITED-KR-ALKEM-2023-06688

PATIENT
  Age: 30 Year
  Sex: Female

DRUGS (2)
  1. AZATHIOPRINE [Interacting]
     Active Substance: AZATHIOPRINE
     Indication: Myelin oligodendrocyte glycoprotein antibody-associated disease
     Dosage: UNK
     Route: 065
  2. TOZINAMERAN [Interacting]
     Active Substance: TOZINAMERAN
     Indication: Myelin oligodendrocyte glycoprotein antibody-associated disease
     Dosage: UNK (SECOND DOSE)
     Route: 065

REACTIONS (2)
  - Myelitis [Unknown]
  - Vaccine interaction [Unknown]
